FAERS Safety Report 13582289 (Version 1)
Quarter: 2017Q2

REPORT INFORMATION
  Report Type: Spontaneous
  Country: US (occurrence: US)
  Receive Date: 20170525
  Receipt Date: 20170525
  Transmission Date: 20170830
  Serious: No
  Sender: FDA-Public Use
  Company Number: US-PFIZER INC-2017225582

PATIENT
  Age: 65 Year
  Sex: Male
  Weight: 124.74 kg

DRUGS (1)
  1. TIKOSYN [Suspect]
     Active Substance: DOFETILIDE
     Indication: ATRIAL FLUTTER
     Dosage: 500 MG, 2X/DAY
     Route: 048
     Dates: start: 201501

REACTIONS (2)
  - Cartilage injury [Not Recovered/Not Resolved]
  - Spinal column stenosis [Not Recovered/Not Resolved]

NARRATIVE: CASE EVENT DATE: 20170426
